FAERS Safety Report 9140057 (Version 1)
Quarter: 2013Q1

REPORT INFORMATION
  Report Type: Spontaneous
  Country: US (occurrence: None)
  Receive Date: 20130205
  Receipt Date: 20130205
  Transmission Date: 20140127
  Serious: Yes (Death)
  Sender: FDA-Public Use
  Company Number: DEP_00820_2013

PATIENT
  Age: 51 Year
  Sex: Female

DRUGS (4)
  1. GABAPENTIN [Suspect]
     Indication: PRODUCT USED FOR UNKNOWN INDICATION
     Dosage: DF ORAL
  2. METHADONE [Suspect]
     Dosage: DF ORAL
  3. CYCLOBENZAPRINE [Suspect]
     Dosage: DF ORAL
  4. TEMAZEPAM [Suspect]
     Dosage: DF ORAL

REACTIONS (4)
  - Respiratory arrest [None]
  - Cardiac arrest [None]
  - Poisoning [None]
  - Completed suicide [None]
